FAERS Safety Report 8915767 (Version 3)
Quarter: 2014Q2

REPORT INFORMATION
  Report Type: Spontaneous
  Country: FR (occurrence: FR)
  Receive Date: 20121119
  Receipt Date: 20131018
  Transmission Date: 20141212
  Serious: Yes (Hospitalization, Other)
  Sender: FDA-Public Use
  Company Number: FR-PFIZER INC-2012284830

PATIENT
  Age: 60 Year
  Sex: Male

DRUGS (10)
  1. SOLU-MEDROL [Suspect]
     Indication: PREMEDICATION
     Dosage: 80 MG, 1X/DAY
     Route: 042
     Dates: start: 20120711, end: 20120801
  2. CISPLATIN [Suspect]
     Indication: PRODUCT USED FOR UNKNOWN INDICATION
     Dosage: 140 MG, CYCLIC
     Route: 042
     Dates: start: 20120711, end: 20120801
  3. PREGABALIN [Suspect]
     Indication: PRODUCT USED FOR UNKNOWN INDICATION
     Dosage: UNK
     Route: 048
     Dates: end: 20120907
  4. ZOPHREN [Suspect]
     Indication: PREMEDICATION
     Dosage: 8 MG, UNK
     Route: 042
     Dates: start: 20120711, end: 20120829
  5. GEMZAR [Suspect]
     Indication: PRODUCT USED FOR UNKNOWN INDICATION
     Dosage: 2400 MG, CYCLIC
     Route: 042
     Dates: start: 20120711, end: 20120829
  6. EMEND [Suspect]
     Indication: PREMEDICATION
     Dosage: 80 MG, 1X/DAY
     Route: 048
     Dates: start: 20120711, end: 20120801
  7. CRESTOR [Concomitant]
     Dosage: 5 MG, 1X/DAY
     Route: 048
  8. TRIATEC [Concomitant]
     Dosage: 5 MG, 1X/DAY
     Route: 048
  9. EUPANTOL [Concomitant]
     Dosage: 40 MG, 1X/DAY
     Route: 048
  10. ROSUVASTATIN CALCIUM [Concomitant]

REACTIONS (10)
  - Interstitial lung disease [Recovering/Resolving]
  - Pulmonary embolism [Recovering/Resolving]
  - Dyspnoea [Recovering/Resolving]
  - Asthenia [Recovering/Resolving]
  - Decreased appetite [Recovering/Resolving]
  - Tachypnoea [Recovering/Resolving]
  - Tachycardia [Recovering/Resolving]
  - Inflammation [Recovering/Resolving]
  - Chest X-ray abnormal [Recovering/Resolving]
  - Septic shock [Recovering/Resolving]
